FAERS Safety Report 8602437-3 (Version None)
Quarter: 2012Q3

REPORT INFORMATION
  Report Type: 
  Country: None (occurrence: None)
  Receive Date: 20120817
  Receipt Date: 20120813
  Transmission Date: 20120928
  Serious: Yes (Other)
  Sender: FDA-Public Use
  Company Number: US-BAYER-2012-061000

PATIENT
  Age: 34 Year
  Sex: Female

DRUGS (1)
  1. MIRENA [Suspect]
     Indication: CONTRACEPTION
     Dosage: 20 MCG/24HR, CONT
     Route: 015
     Dates: start: 20101221, end: 20120529

REACTIONS (6)
  - DEVICE DEPLOYMENT ISSUE [None]
  - ABDOMINAL DISTENSION [None]
  - GENITAL HAEMORRHAGE [None]
  - ADVERSE DRUG REACTION [None]
  - MENORRHAGIA [None]
  - PROCEDURAL PAIN [None]
